FAERS Safety Report 9301210 (Version 1)
Quarter: 2013Q2

REPORT INFORMATION
  Report Type: Spontaneous
  Country: DE (occurrence: DE)
  Receive Date: 20130521
  Receipt Date: 20130521
  Transmission Date: 20140414
  Serious: Yes (Other)
  Sender: FDA-Public Use
  Company Number: DE-B.I. PHARMACEUTICALS,INC./RIDGEFIELD-2013-BI-12964GD

PATIENT
  Age: 64 Year
  Sex: Male

DRUGS (8)
  1. PRAMIPEXOLE [Suspect]
     Indication: RESTLESS LEGS SYNDROME
     Dosage: 0.535 MG
  2. LEVODOPA/BENSERAZIDE [Suspect]
     Indication: RESTLESS LEGS SYNDROME
     Dosage: LEVODOPA/BENSERAZIDE 200 MG/50 MG
  3. PREGABALIN [Suspect]
     Indication: RESTLESS LEGS SYNDROME
     Dosage: 225 MG
  4. FENTANYL [Suspect]
     Indication: RESTLESS LEGS SYNDROME
     Dosage: UP TO 100 MCG HOURLY
     Route: 062
  5. VENLAFAXINE [Suspect]
     Indication: ANTIDEPRESSANT THERAPY
  6. MIRTAZAPINE [Suspect]
     Indication: ANTIDEPRESSANT THERAPY
  7. BISOPROLOL [Concomitant]
     Indication: HYPERTENSION
  8. ALLOPURINOL [Concomitant]
     Indication: HYPERURICAEMIA

REACTIONS (4)
  - Restless legs syndrome [Unknown]
  - Sleep apnoea syndrome [Unknown]
  - Ataxia [Unknown]
  - Repetitive speech [Unknown]
